FAERS Safety Report 8389345-0 (Version None)
Quarter: 2012Q2

REPORT INFORMATION
  Report Type: 
  Country: None (occurrence: None)
  Receive Date: 20120528
  Receipt Date: 20120524
  Transmission Date: 20120825
  Serious: Yes (Disabling)
  Sender: FDA-Public Use
  Company Number: PHEH2012US008605

PATIENT
  Sex: Female

DRUGS (4)
  1. ARICEPT [Suspect]
     Dosage: 10 MG, UNK
     Route: 048
  2. ACETAMINOPHEN [Concomitant]
     Dosage: UNK UKN, UNK
  3. TRAMADOL HYDROCHLORIDE [Suspect]
     Dosage: 50 MG, UNK
     Route: 048
  4. EXELON [Suspect]
     Dosage: 4.6 MG, UNK
     Route: 062

REACTIONS (2)
  - ABDOMINAL DISCOMFORT [None]
  - HYPERHIDROSIS [None]
